FAERS Safety Report 6023390-5 (Version None)
Quarter: 2008Q4

REPORT INFORMATION
  Report Type: 
  Country: None (occurrence: None)
  Receive Date: 20081223
  Receipt Date: 20081208
  Transmission Date: 20090506
  Serious: Yes (Other)
  Sender: FDA-Public Use
  Company Number: 2008S1021994

PATIENT
  Sex: Male

DRUGS (1)
  1. MINAX (METOPROLOL TARTRATE) [Suspect]
     Indication: CARDIOVASCULAR EVENT PROPHYLAXIS
     Dosage: ORAL
     Route: 048

REACTIONS (4)
  - DYSPNOEA EXERTIONAL [None]
  - MALAISE [None]
  - MUSCLE FATIGUE [None]
  - SYNCOPE [None]
